FAERS Safety Report 15990889 (Version 1)
Quarter: 2019Q1

REPORT INFORMATION
  Report Type: Spontaneous
  Country: US (occurrence: US)
  Receive Date: 20190221
  Receipt Date: 20190221
  Transmission Date: 20190418
  Serious: Yes (Disabling)
  Sender: FDA-Public Use
  Company Number: None

PATIENT
  Age: 34 Year
  Sex: Female
  Weight: 60.75 kg

DRUGS (1)
  1. LEVOTHYROXINE. [Suspect]
     Active Substance: LEVOTHYROXINE
     Indication: HYPOTHYROIDISM
     Route: 048
     Dates: start: 20160120, end: 20190217

REACTIONS (11)
  - Malaise [None]
  - Dry skin [None]
  - Lethargy [None]
  - Abortion spontaneous [None]
  - Pregnancy [None]
  - Joint swelling [None]
  - Recalled product administered [None]
  - Arthralgia [None]
  - Asthenia [None]
  - Drug level decreased [None]
  - Alopecia [None]

NARRATIVE: CASE EVENT DATE: 20171010
